FAERS Safety Report 7609318-2 (Version None)
Quarter: 2011Q3

REPORT INFORMATION
  Report Type: 
  Country: None (occurrence: None)
  Receive Date: 20110713
  Receipt Date: 20110713
  Transmission Date: 20111222
  Serious: Yes (Disabling)
  Sender: FDA-Public Use
  Company Number: None

PATIENT
  Sex: Female
  Weight: 73.4827 kg

DRUGS (3)
  1. DEPAKOTE [Suspect]
     Indication: CEREBRAL PALSY
     Dosage: 125MG III CAPS SPRINKLED TWICE DAILY PO
     Route: 048
     Dates: start: 20080101, end: 20080101
  2. DEPAKOTE [Suspect]
     Indication: GRAND MAL CONVULSION
     Dosage: 125MG III CAPS SPRINKLED TWICE DAILY PO
     Route: 048
     Dates: start: 20080101, end: 20080101
  3. DEPAKOTE [Suspect]

REACTIONS (3)
  - THROAT IRRITATION [None]
  - DYSPHAGIA [None]
  - PRODUCT SUBSTITUTION ISSUE [None]
